FAERS Safety Report 24895600 (Version 1)
Quarter: 2025Q1

REPORT INFORMATION
  Report Type: Report from Study
  Country: IN (occurrence: IN)
  Receive Date: 20250128
  Receipt Date: 20250128
  Transmission Date: 20250409
  Serious: Yes (Hospitalization, Other)
  Sender: NOVARTIS
  Company Number: IN-002147023-NVSC2024IN057132

PATIENT
  Age: 68 Year
  Sex: Female

DRUGS (3)
  1. RIBOCICLIB [Suspect]
     Active Substance: RIBOCICLIB
     Indication: Breast cancer metastatic
     Dosage: 600 MG, QD
     Route: 048
     Dates: start: 20220219, end: 20230710
  2. RIBOCICLIB [Suspect]
     Active Substance: RIBOCICLIB
     Indication: Hormone receptor positive HER2 negative breast cancer
     Route: 065
     Dates: start: 20240324
  3. RIBOCICLIB [Suspect]
     Active Substance: RIBOCICLIB
     Route: 048

REACTIONS (6)
  - Fall [Unknown]
  - Breast cancer metastatic [Recovering/Resolving]
  - Malignant neoplasm progression [Recovering/Resolving]
  - Nodule [Recovering/Resolving]
  - Breast pain [Recovering/Resolving]
  - Product use issue [Unknown]

NARRATIVE: CASE EVENT DATE: 20240101
